FAERS Safety Report 14913140 (Version 5)
Quarter: 2020Q1

REPORT INFORMATION
  Report Type: Spontaneous
  Country: HU (occurrence: HU)
  Receive Date: 20180518
  Receipt Date: 20200213
  Transmission Date: 20200409
  Serious: Yes (Other)
  Sender: FDA-Public Use
  Company Number: PHHY2018HU001167

PATIENT

DRUGS (1)
  1. COSENTYX [Suspect]
     Active Substance: SECUKINUMAB
     Indication: PSORIASIS
     Dosage: UNK
     Route: 065
     Dates: start: 201611, end: 201803

REACTIONS (13)
  - Vomiting [Unknown]
  - Crohn^s disease [Unknown]
  - Abdominal lymphadenopathy [Unknown]
  - Gastrointestinal ulcer [Unknown]
  - Diarrhoea [Unknown]
  - C-reactive protein increased [Unknown]
  - Hepatosplenomegaly [Unknown]
  - Gastrointestinal inflammation [Unknown]
  - Retroperitoneal lymphadenopathy [Unknown]
  - Abdominal pain [Unknown]
  - Gastritis [Unknown]
  - Weight decreased [Unknown]
  - Fatigue [Unknown]

NARRATIVE: CASE EVENT DATE: 201802
